FAERS Safety Report 4465444-0 (Version None)
Quarter: 2004Q4

REPORT INFORMATION
  Report Type: 
  Country: None (occurrence: None)
  Receive Date: 20041004
  Receipt Date: 20041001
  Transmission Date: 20050328
  Serious: Yes (Other)
  Sender: FDA-Public Use
  Company Number: 2004019017

PATIENT
  Age: 54 Year
  Sex: Male
  Weight: 95 kg

DRUGS (7)
  1. QUILONUM RETARD [Suspect]
     Dosage: 10TAB SINGLE DOSE
     Route: 048
  2. DOXEPIN HCL [Suspect]
     Dosage: 110TAB SINGLE DOSE
     Route: 048
  3. DICLO [Suspect]
     Dosage: 10TAB SINGLE DOSE
     Route: 048
  4. RISPERDAL [Suspect]
     Dosage: 10TAB SINGLE DOSE
     Route: 048
  5. DOGMATIL [Suspect]
     Dosage: 10CAP SINGLE DOSE
     Route: 048
  6. CIPRAMIL [Suspect]
     Dosage: 20TAB SINGLE DOSE
     Route: 048
  7. DIHYDROERGOTOXINE MESYLATE [Suspect]
     Dosage: 50TAB SINGLE DOSE
     Route: 048

REACTIONS (3)
  - INTENTIONAL OVERDOSE [None]
  - SUICIDE ATTEMPT [None]
  - VOMITING [None]
